FAERS Safety Report 11324955 (Version 1)
Quarter: 2015Q3

REPORT INFORMATION
  Report Type: Spontaneous
  Country: US (occurrence: US)
  Receive Date: 20150730
  Receipt Date: 20150730
  Transmission Date: 20151125
  Serious: No
  Sender: FDA-Public Use
  Company Number: US-BAYER-2015-390216

PATIENT
  Age: 14 Year
  Sex: Male
  Weight: 45.35 kg

DRUGS (2)
  1. CHILDREN CLARITIN ALLERGY [Suspect]
     Active Substance: LORATADINE
     Indication: SNEEZING
     Dosage: 2 DOSE, 9 HOURS AFTER FIRST DOSE
     Route: 048
     Dates: start: 20150727, end: 20150727
  2. CHILDREN CLARITIN ALLERGY [Suspect]
     Active Substance: LORATADINE
     Indication: RHINORRHOEA
     Dosage: UNK
     Route: 048

REACTIONS (1)
  - Product use issue [None]

NARRATIVE: CASE EVENT DATE: 20150727
